FAERS Safety Report 5719017-X (Version None)
Quarter: 2008Q2

REPORT INFORMATION
  Report Type: 
  Country: None (occurrence: None)
  Receive Date: 20080425
  Receipt Date: 20080422
  Transmission Date: 20081010
  Serious: Yes (Death)
  Sender: FDA-Public Use
  Company Number: PHBS2008US04212

PATIENT
  Age: 64 Year
  Sex: Female

DRUGS (2)
  1. CYCLOSPORINE [Suspect]
     Indication: RENAL TRANSPLANT
     Route: 065
  2. METHYLPREDNISOLONE [Suspect]
     Indication: RENAL TRANSPLANT
     Route: 065

REACTIONS (17)
  - ABDOMINAL PAIN [None]
  - ASPERGILLOSIS [None]
  - CYTOMEGALOVIRUS INFECTION [None]
  - CYTOMEGALOVIRUS TEST POSITIVE [None]
  - DEBRIDEMENT [None]
  - DYSURIA [None]
  - EPIDERMAL NECROSIS [None]
  - ESCHAR [None]
  - ESCHERICHIA INFECTION [None]
  - MUCOCUTANEOUS ULCERATION [None]
  - NAUSEA [None]
  - NEPHROSTOMY TUBE PLACEMENT [None]
  - POSTOPERATIVE WOUND COMPLICATION [None]
  - PYELONEPHRITIS [None]
  - RENAL TUBULAR NECROSIS [None]
  - SKIN OEDEMA [None]
  - URETERIC OBSTRUCTION [None]
